FAERS Safety Report 24079577 (Version 1)
Quarter: 2024Q3

REPORT INFORMATION
  Report Type: Spontaneous
  Country: US (occurrence: None)
  Receive Date: 20240711
  Receipt Date: 20240711
  Transmission Date: 20241017
  Serious: No
  Sender: US WORLDMEDS
  Company Number: US-USWM, LLC-UWM202405-000040

PATIENT
  Age: 7 Year
  Sex: Female

DRUGS (1)
  1. IWILFIN [Suspect]
     Active Substance: EFLORNITHINE HYDROCHLORIDE
     Indication: Product used for unknown indication
     Dates: start: 2024

REACTIONS (1)
  - Decreased appetite [Unknown]
